FAERS Safety Report 7108993-9 (Version None)
Quarter: 2010Q4

REPORT INFORMATION
  Report Type: 
  Country: None (occurrence: None)
  Receive Date: 20101117
  Receipt Date: 20101112
  Transmission Date: 20110411
  Serious: Yes (Death, Hospitalization)
  Sender: FDA-Public Use
  Company Number: DE-CELGENEUS-062-C5013-10102950

PATIENT
  Age: 68 Year
  Sex: Male
  Weight: 72 kg

DRUGS (4)
  1. CC-5013\PLACEBO [Suspect]
     Indication: PROSTATE CANCER
     Route: 048
     Dates: start: 20101015, end: 20101030
  2. DOCETAXEL [Suspect]
     Indication: PROSTATE CANCER
     Route: 065
     Dates: start: 20101014, end: 20101030
  3. PREDNISONE [Suspect]
     Indication: PROSTATE CANCER
     Route: 065
     Dates: start: 20101015, end: 20101030
  4. FENTANYL [Concomitant]
     Indication: PAIN
     Route: 062
     Dates: end: 20101030

REACTIONS (5)
  - BLOOD CREATININE INCREASED [None]
  - BLOOD UREA INCREASED [None]
  - MYOCARDIAL INFARCTION [None]
  - NEUTROPENIA [None]
  - PNEUMONIA [None]
